FAERS Safety Report 16958874 (Version 1)
Quarter: 2019Q4

REPORT INFORMATION
  Report Type: Spontaneous
  Country: CO (occurrence: CO)
  Receive Date: 20191024
  Receipt Date: 20191024
  Transmission Date: 20200122
  Serious: Yes (Hospitalization, Disabling, Other)
  Sender: FDA-Public Use
  Company Number: CO-009507513-1909COL006778

PATIENT
  Age: 25 Year
  Sex: Female
  Weight: 60 kg

DRUGS (2)
  1. ALPRAZOLAM. [Suspect]
     Active Substance: ALPRAZOLAM
     Dosage: 0.25 MG BEFORE SLEEP
     Route: 048
     Dates: end: 20190920
  2. IMPLANON NXT [Suspect]
     Active Substance: ETONOGESTREL
     Dosage: 1 IMPLANT EVERY 3 YEARS
     Route: 059
     Dates: start: 20190914

REACTIONS (21)
  - Anxiety [Unknown]
  - Speech disorder [Unknown]
  - Thinking abnormal [Unknown]
  - Headache [Unknown]
  - Asthenia [Unknown]
  - Nightmare [Not Recovered/Not Resolved]
  - Depressed mood [Unknown]
  - Movement disorder [Not Recovered/Not Resolved]
  - Paraesthesia [Recovering/Resolving]
  - Emotional disorder [Unknown]
  - Asthenia [Recovered/Resolved]
  - Insomnia [Unknown]
  - Drug ineffective [Unknown]
  - Crying [Not Recovered/Not Resolved]
  - Paralysis [Recovered/Resolved]
  - Feeling abnormal [Unknown]
  - Hypoaesthesia [Not Recovered/Not Resolved]
  - Panic attack [Recovering/Resolving]
  - Feeling abnormal [Recovering/Resolving]
  - Memory impairment [Recovered/Resolved]
  - Fear [Recovering/Resolving]

NARRATIVE: CASE EVENT DATE: 201909
